FAERS Safety Report 8037342-7 (Version None)
Quarter: 2012Q1

REPORT INFORMATION
  Report Type: 
  Country: None (occurrence: None)
  Receive Date: 20120111
  Receipt Date: 20120109
  Transmission Date: 20120608
  Serious: Yes (Hospitalization, Other)
  Sender: FDA-Public Use
  Company Number: BR-ABBOTT-11P-020-0883186-00

PATIENT
  Sex: Female
  Weight: 56 kg

DRUGS (12)
  1. METICORTEN [Concomitant]
     Indication: CROHN'S DISEASE
  2. CORTICOSTEROIDS [Concomitant]
     Indication: SYSTEMIC LUPUS ERYTHEMATOSUS
  3. HUMIRA [Suspect]
     Indication: CROHN'S DISEASE
     Dosage: INDUCTION DOSE
     Route: 058
     Dates: start: 20111209, end: 20111209
  4. HUMIRA [Suspect]
  5. LEVOTHYROXINE SODIUM [Concomitant]
     Indication: THYROID DISORDER
     Route: 048
  6. HUMIRA [Suspect]
     Dosage: SECOND DOSE
     Route: 058
  7. GLIMEPIRIDE [Concomitant]
     Indication: BLOOD GLUCOSE
  8. LOSARTAN POTASSIUM [Concomitant]
     Indication: HYPERTENSION
     Route: 048
  9. GLIMEPIRIDE [Concomitant]
     Indication: DIABETES MELLITUS
     Route: 048
  10. METICORTEN [Concomitant]
     Indication: SYSTEMIC LUPUS ERYTHEMATOSUS
     Route: 048
  11. PANTOPRAZOLE [Concomitant]
     Indication: GASTRIC DISORDER
     Route: 048
  12. PANTOPRAZOLE [Concomitant]
     Indication: PROPHYLAXIS

REACTIONS (10)
  - VOMITING [None]
  - ABDOMINAL PAIN [None]
  - FEELING ABNORMAL [None]
  - CONSTIPATION [None]
  - FAECALOMA [None]
  - CROHN'S DISEASE [None]
  - FLATULENCE [None]
  - SUBILEUS [None]
  - HAEMOLYTIC ANAEMIA [None]
  - DIARRHOEA [None]
